FAERS Safety Report 24934562 (Version 1)
Quarter: 2025Q1

REPORT INFORMATION
  Report Type: Report from Study
  Country: US (occurrence: US)
  Receive Date: 20250206
  Receipt Date: 20250206
  Transmission Date: 20250408
  Serious: Yes (Other)
  Sender: EXELIXIS
  Company Number: US-EXELIXIS-CABO-24079305

PATIENT
  Age: 72 Year
  Sex: Female

DRUGS (8)
  1. CABOMETYX [Suspect]
     Active Substance: CABOZANTINIB S-MALATE
     Indication: Angiosarcoma
     Dates: start: 20240709, end: 20240806
  2. CABOMETYX [Suspect]
     Active Substance: CABOZANTINIB S-MALATE
     Dosage: 20 MG, QD
     Dates: start: 20240830
  3. OPDIVO [Suspect]
     Active Substance: NIVOLUMAB
     Indication: Angiosarcoma
     Dosage: UNK, Q4WEEKS
     Dates: start: 20240709
  4. ATENOLOL [Concomitant]
     Active Substance: ATENOLOL
  5. COLACE [Concomitant]
     Active Substance: DOCUSATE SODIUM
  6. XARELTO [Concomitant]
     Active Substance: RIVAROXABAN
  7. ZOFRAN [Concomitant]
     Active Substance: ONDANSETRON HYDROCHLORIDE
  8. LOPERAMIDE [Concomitant]
     Active Substance: LOPERAMIDE

REACTIONS (22)
  - Platelet count decreased [Recovered/Resolved]
  - Thyroid hormones increased [Recovered/Resolved]
  - Diarrhoea [Not Recovered/Not Resolved]
  - Nausea [Recovered/Resolved]
  - Constipation [Recovered/Resolved]
  - Pruritus [Not Recovered/Not Resolved]
  - Alanine aminotransferase increased [Recovered/Resolved]
  - Aspartate aminotransferase increased [Recovered/Resolved]
  - Rash [Unknown]
  - Fatigue [Unknown]
  - Hepatic enzyme increased [Unknown]
  - Adverse event [Not Recovered/Not Resolved]
  - Hypersomnia [Unknown]
  - Lip pain [Recovered/Resolved]
  - Haemorrhoids [Unknown]
  - Defaecation urgency [Unknown]
  - Somnolence [Unknown]
  - Pulmonary mass [Unknown]
  - Dysphagia [Not Recovered/Not Resolved]
  - Gingival pain [Unknown]
  - Blood test abnormal [Unknown]
  - Off label use [Unknown]

NARRATIVE: CASE EVENT DATE: 20240709
